FAERS Safety Report 4469190-9 (Version None)
Quarter: 2004Q4

REPORT INFORMATION
  Report Type: 
  Country: None (occurrence: None)
  Receive Date: 20041005
  Receipt Date: 20040921
  Transmission Date: 20050328
  Serious: Yes (Other)
  Sender: FDA-Public Use
  Company Number: 200407369

PATIENT
  Age: 54 Year
  Sex: Female
  Weight: 70.3075 kg

DRUGS (11)
  1. RESTASIS [Suspect]
     Indication: KERATOCONJUNCTIVITIS SICCA
     Dosage: 2 DROP QD EYE
  2. LOVENOX [Concomitant]
  3. POT CHLOR XR [Concomitant]
  4. SALAGEN [Concomitant]
  5. NEURONTIN [Concomitant]
  6. WARFARIN SODIUM [Concomitant]
  7. SYNTHROID [Concomitant]
  8. TORSEMIDE [Concomitant]
  9. ONE-A-DAY [Concomitant]
  10. MAGNESIUM PLUS ZINC [Concomitant]
  11. CALCIUM WITH VITAMIN D [Concomitant]

REACTIONS (10)
  - CHEST DISCOMFORT [None]
  - DYSPHONIA [None]
  - DYSPNOEA [None]
  - ERYTHEMA [None]
  - EYE IRRITATION [None]
  - EYE REDNESS [None]
  - LACRIMATION INCREASED [None]
  - SWELLING FACE [None]
  - THROAT TIGHTNESS [None]
  - VISION BLURRED [None]
